FAERS Safety Report 5027679-8 (Version None)
Quarter: 2006Q2

REPORT INFORMATION
  Report Type: 
  Country: None (occurrence: None)
  Receive Date: 20060614
  Receipt Date: 20060614
  Transmission Date: 20061013
  Serious: Yes (Life-Threatening, Other)
  Sender: FDA-Public Use
  Company Number: None

PATIENT
  Age: 54 Year
  Sex: Male
  Weight: 90.7194 kg

DRUGS (3)
  1. CELEBREX [Suspect]
     Indication: BARRETT'S OESOPHAGUS
     Dosage: 2 X PER DAY PO
     Route: 048
     Dates: start: 20000101, end: 20050819
  2. CELEBREX [Suspect]
     Indication: DYSPNOEA
     Dosage: 2 X PER DAY PO
     Route: 048
     Dates: start: 20000101, end: 20050819
  3. CELEBREX [Suspect]
     Indication: SCAR
     Dosage: 2 X PER DAY PO
     Route: 048
     Dates: start: 20000101, end: 20050819

REACTIONS (6)
  - CARDIAC DISORDER [None]
  - DRUG EFFECT DECREASED [None]
  - DYSPNOEA EXERTIONAL [None]
  - MENTAL IMPAIRMENT [None]
  - PHARMACEUTICAL PRODUCT COUNTERFEIT [None]
  - SENSATION OF HEAVINESS [None]
